FAERS Safety Report 6296486-0 (Version None)
Quarter: 2009Q3

REPORT INFORMATION
  Report Type: 
  Country: None (occurrence: None)
  Receive Date: 20090804
  Receipt Date: 20090730
  Transmission Date: 20100115
  Serious: Yes (Hospitalization)
  Sender: FDA-Public Use
  Company Number: A0799937A

PATIENT
  Sex: Female
  Weight: 53 kg

DRUGS (4)
  1. LAPATINIB [Suspect]
     Indication: NEOPLASM
     Route: 048
     Dates: start: 20081218, end: 20090730
  2. XELODA [Suspect]
     Indication: NEOPLASM
     Dosage: 2000MGM2 PER DAY
     Route: 048
     Dates: start: 20081218
  3. BENPROPERINE [Concomitant]
     Dosage: 200MG THREE TIMES PER DAY
     Route: 048
     Dates: start: 20090727, end: 20090101
  4. SULTAMICILLIN [Concomitant]
     Dosage: 375MG THREE TIMES PER DAY
     Route: 048
     Dates: start: 20090727, end: 20090729

REACTIONS (3)
  - CHILLS [None]
  - OROPHARYNGEAL PAIN [None]
  - PYREXIA [None]
